FAERS Safety Report 11234111 (Version 1)
Quarter: 2015Q3

REPORT INFORMATION
  Report Type: Spontaneous
  Country: KP (occurrence: KP)
  Receive Date: 20150702
  Receipt Date: 20150702
  Transmission Date: 20151125
  Serious: Yes (Death)
  Sender: FDA-Public Use
  Company Number: KP-CIPLA LTD.-2015KP05086

PATIENT

DRUGS (6)
  1. CAPEGARD [Suspect]
     Active Substance: CAPECITABINE
     Indication: TRIPLE NEGATIVE BREAST CANCER
     Dosage: UNK
     Route: 065
  2. IRINOTECAN [Suspect]
     Active Substance: IRINOTECAN
     Indication: METASTASES TO LUNG
  3. IRINOTECAN [Suspect]
     Active Substance: IRINOTECAN
     Indication: METASTASES TO BONE
  4. IRINOTECAN [Suspect]
     Active Substance: IRINOTECAN
     Indication: TRIPLE NEGATIVE BREAST CANCER
     Dosage: UNK
     Route: 065
  5. CAPEGARD [Suspect]
     Active Substance: CAPECITABINE
     Indication: METASTASES TO BONE
  6. CAPEGARD [Suspect]
     Active Substance: CAPECITABINE
     Indication: METASTASES TO LUNG

REACTIONS (1)
  - Metastases to central nervous system [Fatal]
